FAERS Safety Report 4904912-1 (Version None)
Quarter: 2006Q1

REPORT INFORMATION
  Report Type: 
  Country: None (occurrence: None)
  Receive Date: 20060208
  Receipt Date: 20051019
  Transmission Date: 20060701
  Serious: No
  Sender: FDA-Public Use
  Company Number: US-GLAXOSMITHKLINE-A0579082A

PATIENT
  Sex: Female

DRUGS (4)
  1. PAROXETINE HCL [Suspect]
     Indication: DRUG USE FOR UNKNOWN INDICATION
     Dosage: 20MG UNKNOWN
     Route: 048
  2. PAXIL CR [Suspect]
     Indication: DEPRESSION
     Dosage: 12.5MG FOUR TIMES PER DAY
     Route: 048
     Dates: start: 20050901
  3. DEPAKOTE [Concomitant]
  4. TRAZODONE [Concomitant]

REACTIONS (2)
  - CRYING [None]
  - DRUG INEFFECTIVE [None]
